FAERS Safety Report 10442746 (Version 2)
Quarter: 2014Q4

REPORT INFORMATION
  Report Type: Other
  Country: US (occurrence: US)
  Receive Date: 20140909
  Receipt Date: 20141104
  Transmission Date: 20150528
  Serious: Yes (Other)
  Sender: FDA-Public Use
  Company Number: US-ACORDA-ACO_105750_2014

PATIENT
  Age: 61 Year
  Sex: Female

DRUGS (1)
  1. AMPYRA [Suspect]
     Active Substance: DALFAMPRIDINE
     Indication: MULTIPLE SCLEROSIS
     Dosage: 10 MG, Q 12 HRS
     Route: 065

REACTIONS (2)
  - Retinal detachment [Unknown]
  - Retinal detachment [Unknown]

NARRATIVE: CASE EVENT DATE: 20140702
